FAERS Safety Report 6654606-X (Version None)
Quarter: 2010Q1

REPORT INFORMATION
  Report Type: 
  Country: None (occurrence: None)
  Receive Date: 20100326
  Receipt Date: 20100315
  Transmission Date: 20100710
  Serious: Yes (Hospitalization, Other)
  Sender: FDA-Public Use
  Company Number: US-ELI_LILLY_AND_COMPANY-US201001000097

PATIENT
  Sex: Female

DRUGS (5)
  1. CYMBALTA [Suspect]
     Indication: DEPRESSION
     Dosage: 60 MG, DAILY (1/D)
  2. TRINESSA [Concomitant]
  3. TORADOL [Concomitant]
  4. PHENERGAN HCL [Concomitant]
  5. DEMEROL [Concomitant]

REACTIONS (6)
  - BACTERIAL TEST POSITIVE [None]
  - C-REACTIVE PROTEIN INCREASED [None]
  - CONVULSION [None]
  - DRUG INTERACTION [None]
  - PORPHYRIA [None]
  - RENAL COLIC [None]
